FAERS Safety Report 10915298 (Version 1)
Quarter: 2015Q1

REPORT INFORMATION
  Report Type: Spontaneous
  Country: GB (occurrence: GB)
  Receive Date: 20150316
  Receipt Date: 20150316
  Transmission Date: 20150721
  Serious: Yes (Other)
  Sender: FDA-Public Use
  Company Number: GB-ORION CORPORATION ORION PHARMA-ENT 2015-0043

PATIENT
  Sex: Male

DRUGS (16)
  1. ENTACAPONE ORION [Suspect]
     Active Substance: ENTACAPONE
     Route: 065
     Dates: start: 2002, end: 200909
  2. PRAMIPEXOLE [Suspect]
     Active Substance: PRAMIPEXOLE
     Route: 065
     Dates: start: 2002, end: 2007
  3. ROPINIROLE. [Suspect]
     Active Substance: ROPINIROLE
     Route: 065
     Dates: start: 2002, end: 2007
  4. APOMORPHINE [Suspect]
     Active Substance: APOMORPHINE
     Route: 058
     Dates: start: 2007, end: 2007
  5. CO-CARELDOPA [Suspect]
     Active Substance: CARBIDOPA\LEVODOPA
     Route: 065
     Dates: start: 200909, end: 201007
  6. BENSERAZIDE [Suspect]
     Active Substance: BENSERAZIDE
     Route: 065
     Dates: start: 2002, end: 2007
  7. CO-CARELDOPA [Suspect]
     Active Substance: CARBIDOPA\LEVODOPA
     Route: 065
     Dates: start: 201007
  8. SELEGILINE [Suspect]
     Active Substance: SELEGILINE
     Route: 065
     Dates: start: 1995
  9. AMANTADINE [Suspect]
     Active Substance: AMANTADINE
     Route: 065
     Dates: start: 201007
  10. ROPINIROLE. [Suspect]
     Active Substance: ROPINIROLE
     Route: 065
     Dates: start: 200909
  11. AMANTADINE [Suspect]
     Active Substance: AMANTADINE
     Route: 065
     Dates: start: 2002, end: 2007
  12. CO-CARELDOPA [Suspect]
     Active Substance: CARBIDOPA\LEVODOPA
     Route: 065
     Dates: start: 2000, end: 200909
  13. LEVODOPA [Suspect]
     Active Substance: LEVODOPA
     Route: 065
     Dates: start: 2002, end: 2007
  14. AMANTADINE [Suspect]
     Active Substance: AMANTADINE
     Route: 065
     Dates: start: 200811
  15. ORPHENADRINE [Suspect]
     Active Substance: ORPHENADRINE
     Route: 065
     Dates: start: 201007
  16. ROTIGOTINE [Concomitant]
     Active Substance: ROTIGOTINE
     Route: 065
     Dates: start: 2007

REACTIONS (11)
  - Decreased appetite [Recovered/Resolved]
  - Dyskinesia [Recovered/Resolved]
  - Skin mass [Recovered/Resolved]
  - Transient ischaemic attack [Unknown]
  - Balance disorder [Unknown]
  - Depression [Recovering/Resolving]
  - Memory impairment [Recovering/Resolving]
  - Haemorrhage [Recovered/Resolved]
  - Hyperhidrosis [Recovered/Resolved]
  - Tremor [Recovered/Resolved]
  - On and off phenomenon [Unknown]

NARRATIVE: CASE EVENT DATE: 2002
